FAERS Safety Report 10448243 (Version 1)
Quarter: 2014Q3

REPORT INFORMATION
  Report Type: Spontaneous
  Country: US (occurrence: US)
  Receive Date: 20140911
  Receipt Date: 20140911
  Transmission Date: 20150326
  Serious: Yes (Other)
  Sender: FDA-Public Use
  Company Number: US-ASTRAZENECA-2014SE66398

PATIENT
  Sex: Male

DRUGS (4)
  1. RITONAVIR [Concomitant]
     Active Substance: RITONAVIR
  2. DURANAVIR [Concomitant]
  3. RALTEGRAVIR [Concomitant]
     Active Substance: RALTEGRAVIR
     Dosage: 400 MG
  4. CRESTOR [Suspect]
     Active Substance: ROSUVASTATIN CALCIUM
     Route: 048
     Dates: start: 2009

REACTIONS (4)
  - Coronary artery occlusion [Unknown]
  - Myocardial infarction [Unknown]
  - Pain [Unknown]
  - Troponin increased [Unknown]

NARRATIVE: CASE EVENT DATE: 2014
